FAERS Safety Report 24811740 (Version 2)
Quarter: 2025Q1

REPORT INFORMATION
  Report Type: Report from Study
  Country: US (occurrence: US)
  Receive Date: 20250106
  Receipt Date: 20250214
  Transmission Date: 20250408
  Serious: Yes (Hospitalization)
  Sender: PARATEK PHARMACEUTICALS
  Company Number: US-PARATEK PHARMACEUTICALS, INC.-2024PTK01211

PATIENT
  Age: 63 Year
  Sex: Female

DRUGS (2)
  1. NUZYRA [Suspect]
     Active Substance: OMADACYCLINE
     Indication: Wound infection bacterial
     Dosage: 450 MG, 1X/DAY FOR TWO DAYS
     Route: 048
     Dates: start: 202412, end: 202412
  2. NUZYRA [Suspect]
     Active Substance: OMADACYCLINE
     Indication: Staphylococcal skin infection
     Dosage: 300 MG, 1X/DAY
     Route: 048
     Dates: start: 202412

REACTIONS (2)
  - Staphylococcal skin infection [Unknown]
  - Drug ineffective [Unknown]

NARRATIVE: CASE EVENT DATE: 20241201
